FAERS Safety Report 5628645-1 (Version None)
Quarter: 2008Q1

REPORT INFORMATION
  Report Type: 
  Country: None (occurrence: None)
  Receive Date: 20080215
  Receipt Date: 20080205
  Transmission Date: 20080703
  Serious: Yes (Hospitalization, Other)
  Sender: FDA-Public Use
  Company Number: US-PFIZER INC-2008011772

PATIENT
  Sex: Female

DRUGS (6)
  1. DILANTIN [Suspect]
     Indication: CONVULSION
  2. DILANTIN [Suspect]
  3. PHENYTOIN [Suspect]
  4. TEGRETOL [Suspect]
     Indication: CONVULSION
  5. VALIUM [Concomitant]
     Indication: CONVULSION
  6. VITAMINS [Concomitant]

REACTIONS (12)
  - ABNORMAL BEHAVIOUR [None]
  - ANOREXIA [None]
  - ANTICONVULSANT DRUG LEVEL DECREASED [None]
  - ANTICONVULSANT DRUG LEVEL INCREASED [None]
  - BRAIN OPERATION [None]
  - CONVULSION [None]
  - FATIGUE [None]
  - MALAISE [None]
  - STOMACH DISCOMFORT [None]
  - SURGERY [None]
  - WEIGHT DECREASED [None]
  - WITHDRAWAL SYNDROME [None]
